FAERS Safety Report 6511195-8 (Version None)
Quarter: 2009Q4

REPORT INFORMATION
  Report Type: 
  Country: None (occurrence: None)
  Receive Date: 20091222
  Receipt Date: 20090225
  Transmission Date: 20100525
  Serious: No
  Sender: FDA-Public Use
  Company Number: US-ASTRAZENECA-2009UW05204

PATIENT
  Age: 74 Year
  Sex: Female
  Weight: 73.9 kg

DRUGS (3)
  1. CRESTOR [Suspect]
     Indication: BLOOD CHOLESTEROL
     Route: 048
     Dates: start: 20070201
  2. IRON [Concomitant]
  3. PREVACID [Concomitant]

REACTIONS (2)
  - FATIGUE [None]
  - SKIN DISCOMFORT [None]
